FAERS Safety Report 10008888 (Version 2)
Quarter: 2014Q1

REPORT INFORMATION
  Report Type: Spontaneous
  Country: US (occurrence: US)
  Receive Date: 20140312
  Receipt Date: 20140312
  Transmission Date: 20141002
  Serious: Yes (Other)
  Sender: FDA-Public Use
  Company Number: US-INCYTE CORPORATION-2012IN000360

PATIENT
  Age: 79 Year
  Sex: Male

DRUGS (5)
  1. JAKAFI [Suspect]
     Indication: MYELOFIBROSIS
     Dosage: 20 MG, BID
     Route: 048
     Dates: start: 20120112, end: 201202
  2. JAKAFI [Suspect]
     Dosage: 10 MG, BID (ONE-HALF 20 MG TABLET)
     Route: 048
     Dates: start: 2012, end: 201203
  3. JAKAFI [Suspect]
     Dosage: 10 MG, BID
     Route: 048
     Dates: start: 201304
  4. LOTENSIN [Concomitant]
     Dosage: UNK
  5. PREVACID [Concomitant]
     Dosage: UNK

REACTIONS (6)
  - Anaemia [Not Recovered/Not Resolved]
  - Splenomegaly [Unknown]
  - Abdominal pain lower [Unknown]
  - Asthenia [Not Recovered/Not Resolved]
  - Fatigue [Unknown]
  - Medication error [Unknown]
